FAERS Safety Report 9770549 (Version 3)
Quarter: 2014Q2

REPORT INFORMATION
  Report Type: Spontaneous
  Country: US (occurrence: US)
  Receive Date: 20131218
  Receipt Date: 20140626
  Transmission Date: 20141212
  Serious: Yes (Hospitalization)
  Sender: FDA-Public Use
  Company Number: US-GLAXOSMITHKLINE-A0911734A

PATIENT
  Sex: Female

DRUGS (1)
  1. SORIATANE [Suspect]
     Indication: PSORIASIS
     Dosage: 25MG UNKNOWN
     Route: 048
     Dates: start: 20010501

REACTIONS (6)
  - Ear infection [Unknown]
  - Arthritis [Unknown]
  - Drug dose omission [Not Recovered/Not Resolved]
  - Rash [Not Recovered/Not Resolved]
  - Nervousness [Not Recovered/Not Resolved]
  - Confusional state [Not Recovered/Not Resolved]
